FAERS Safety Report 5719081-8 (Version None)
Quarter: 2008Q2

REPORT INFORMATION
  Report Type: 
  Country: None (occurrence: None)
  Receive Date: 20080423
  Receipt Date: 20080416
  Transmission Date: 20081010
  Serious: Yes (Death, Hospitalization)
  Sender: FDA-Public Use
  Company Number: 2008S1005577

PATIENT
  Age: 81 Year
  Sex: Female

DRUGS (6)
  1. AZATHIOPRINE [Suspect]
     Indication: IMMUNOSUPPRESSANT DRUG THERAPY
     Dosage: 50 MG, DAILY
  2. PREDNISOLONE [Suspect]
     Indication: IMMUNOSUPPRESSANT DRUG THERAPY
     Dosage: 30 MG; DAILY : 60 MG;DAILY
  3. BENZYLPENICILLIN (BENZYLPENICILLIN) [Concomitant]
  4. CIPROFLOXACIN [Concomitant]
  5. GENTAMICIN [Concomitant]
  6. TEICOPLANIN (TEICOPLANIN) [Concomitant]

REACTIONS (11)
  - CHEST X-RAY ABNORMAL [None]
  - CONFUSIONAL STATE [None]
  - FALL [None]
  - HEPATIC FUNCTION ABNORMAL [None]
  - HODGKIN'S DISEASE [None]
  - LYMPHADENOPATHY [None]
  - OXYGEN SATURATION DECREASED [None]
  - PNEUMOCYSTIS JIROVECI PNEUMONIA [None]
  - RALES [None]
  - RESPIRATORY DISORDER [None]
  - RESPIRATORY RATE INCREASED [None]
